FAERS Safety Report 8822623 (Version 1)
Quarter: 2012Q4

REPORT INFORMATION
  Report Type: 
  Country: CN (occurrence: CN)
  Receive Date: 20121003
  Receipt Date: 20121003
  Transmission Date: 20130627
  Serious: Yes (Other)
  Sender: FDA-Public Use
  Company Number: CN-PFIZER INC-2012242833

PATIENT
  Age: 2 Year
  Sex: Female

DRUGS (1)
  1. IBUPROFEN [Suspect]
     Indication: PYREXIA
     Dosage: 4 ml, 3x/day
     Route: 048
     Dates: start: 20100524, end: 20100528

REACTIONS (2)
  - Amblyopia [Recovering/Resolving]
  - Strabismus [Recovering/Resolving]
